FAERS Safety Report 25746555 (Version 1)
Quarter: 2025Q3

REPORT INFORMATION
  Report Type: Spontaneous
  Country: US (occurrence: US)
  Receive Date: 20250901
  Receipt Date: 20250901
  Transmission Date: 20251021
  Serious: No
  Sender: ABBVIE
  Company Number: US-ABBVIE-6437382

PATIENT
  Age: 42 Year
  Sex: Female

DRUGS (1)
  1. BOTOX COSMETIC [Suspect]
     Active Substance: ONABOTULINUMTOXINA
     Indication: Skin wrinkling
     Route: 065
     Dates: start: 20250805, end: 20250805

REACTIONS (2)
  - Hypoaesthesia [Unknown]
  - Dysphagia [Unknown]

NARRATIVE: CASE EVENT DATE: 20250801
